FAERS Safety Report 15325297 (Version 2)
Quarter: 2018Q3

REPORT INFORMATION
  Report Type: Spontaneous
  Country: DE (occurrence: DE)
  Receive Date: 20180828
  Receipt Date: 20180906
  Transmission Date: 20181010
  Serious: Yes (Death, Other)
  Sender: FDA-Public Use
  Company Number: DE-009507513-1808DEU009803

PATIENT
  Age: 74 Year
  Sex: Female
  Weight: 73 kg

DRUGS (8)
  1. KEYTRUDA [Suspect]
     Active Substance: PEMBROLIZUMAB
     Indication: SQUAMOUS CELL CARCINOMA
     Dosage: DAILY DOSE: 1 DF DOSAGE FORM EVERY 3 WEEKS
     Route: 042
     Dates: start: 20150701, end: 20160916
  2. L?THYROXIN [Concomitant]
     Active Substance: LEVOTHYROXINE SODIUM
     Indication: HYPOTHYROIDISM
     Dosage: DAILY DOSE: 150 ?G MICROGRAM(S) EVERY DAYS
     Route: 048
  3. MST (MORPHINE SULFATE) [Concomitant]
     Indication: PAIN
     Dosage: DAILY DOSE: 30 MG MILLGRAM(S) EVERY DAYS
     Route: 048
  4. LYRICA [Concomitant]
     Active Substance: PREGABALIN
     Indication: PAIN
     Dosage: DAILY DOSE: 300 MG MILLGRAM(S) EVERY 2 DAYS
     Route: 048
  5. SAROTEN [Concomitant]
     Active Substance: AMITRIPTYLINE
     Indication: PAIN
     Dosage: DAILY DOSE: 50 MG MILLGRAM(S) EVERY DAYS
     Route: 048
  6. TORSEMIDE. [Concomitant]
     Active Substance: TORSEMIDE
     Indication: OEDEMA
     Dosage: DAILY DOSE: 10 MG MILLGRAM(S) EVERY DAYS
     Route: 048
  7. DIPYRONE [Concomitant]
     Active Substance: DIPYRONE
     Indication: PAIN
     Dosage: DAILY DOSE: 4 DF DOSAGE FORM EVERY DAYS
     Route: 048
  8. KEYTRUDA [Suspect]
     Active Substance: PEMBROLIZUMAB
     Dosage: DAILY DOSE: 1 DF DOSAGE FORM EVERY 3 WEEKS
     Route: 042
     Dates: start: 20150701, end: 20160916

REACTIONS (2)
  - Cutis laxa [Fatal]
  - Sepsis [Fatal]

NARRATIVE: CASE EVENT DATE: 20160901
